FAERS Safety Report 8361443-7 (Version None)
Quarter: 2012Q2

REPORT INFORMATION
  Report Type: 
  Country: None (occurrence: None)
  Receive Date: 20120515
  Receipt Date: 20110830
  Transmission Date: 20120825
  Serious: No
  Sender: FDA-Public Use
  Company Number: US-ALEXION-A201101331

PATIENT
  Sex: Female

DRUGS (3)
  1. SOLIRIS [Suspect]
     Indication: PAROXYSMAL NOCTURNAL HAEMOGLOBINURIA
     Dosage: 600 MG UNK
     Route: 042
     Dates: start: 20071126
  2. SOLIRIS [Suspect]
     Dosage: 900 MG Q2W
     Route: 042
     Dates: start: 20071227
  3. MENINGOCOCCAL VACCINE [Suspect]
     Dosage: UNK
     Dates: start: 20110707, end: 20110707

REACTIONS (3)
  - PAIN IN EXTREMITY [None]
  - INTERVERTEBRAL DISC PROTRUSION [None]
  - ARTHRITIS [None]
